FAERS Safety Report 6713096-9 (Version None)
Quarter: 2010Q2

REPORT INFORMATION
  Report Type: 
  Country: None (occurrence: None)
  Receive Date: 20100506
  Receipt Date: 20100430
  Transmission Date: 20101027
  Serious: Yes (Hospitalization, Other)
  Sender: FDA-Public Use
  Company Number: SA-BAYER-201023868GPV

PATIENT
  Age: 63 Year
  Sex: Male

DRUGS (4)
  1. CIPROFLOXACIN [Suspect]
     Indication: TUBERCULOSIS
     Route: 065
     Dates: start: 20030101, end: 20050101
  2. PYRAZINAMIDE [Concomitant]
     Indication: TUBERCULOSIS
     Route: 065
     Dates: start: 20030101, end: 20050101
  3. ETHAMBUTOL [Concomitant]
     Indication: TUBERCULOSIS
     Route: 065
     Dates: start: 20030101, end: 20050101
  4. ISONIAZID [Concomitant]
     Indication: TUBERCULOSIS
     Route: 065
     Dates: start: 20030301, end: 20050101

REACTIONS (1)
  - TUBERCULOSIS [None]
